FAERS Safety Report 17281283 (Version 1)
Quarter: 2020Q1

REPORT INFORMATION
  Report Type: Spontaneous
  Country: US (occurrence: US)
  Receive Date: 20200117
  Receipt Date: 20200117
  Transmission Date: 20200409
  Serious: No
  Sender: FDA-Public Use
  Company Number: US-AUROBINDO-AUR-APL-2018-059148

PATIENT

DRUGS (1)
  1. DEXAMFETAMINE+AMFETAMINE TABLET [Suspect]
     Active Substance: AMPHETAMINE\DEXTROAMPHETAMINE
     Indication: PRODUCT USED FOR UNKNOWN INDICATION
     Route: 065

REACTIONS (4)
  - Drug ineffective [Unknown]
  - Product shape issue [Unknown]
  - Product substitution issue [Unknown]
  - Product taste abnormal [Unknown]
